FAERS Safety Report 14283014 (Version 4)
Quarter: 2020Q3

REPORT INFORMATION
  Report Type: Spontaneous
  Country: US (occurrence: US)
  Receive Date: 20171213
  Receipt Date: 20200724
  Transmission Date: 20201102
  Serious: No
  Sender: FDA-Public Use
  Company Number: US-PFIZER INC-2017486691

PATIENT
  Age: 64 Year
  Sex: Female
  Weight: 72 kg

DRUGS (7)
  1. OMEPRAZOLE. [Concomitant]
     Active Substance: OMEPRAZOLE
     Indication: GASTROINTESTINAL DISORDER
     Dosage: 40 MG, 1X/DAY
  2. XELJANZ XR [Suspect]
     Active Substance: TOFACITINIB CITRATE
     Indication: BACK DISORDER
     Dosage: 11 MG, 1X/DAY
     Dates: start: 20171024
  3. HYDROCODONE [Concomitant]
     Active Substance: HYDROCODONE
     Indication: PAIN
     Dosage: UNK (10?325MG ONCE EVERY FOUR HOURS)
  4. VITAMIN D [Concomitant]
     Active Substance: VITAMIN D NOS
     Indication: VITAMIN D DEFICIENCY
     Dosage: 50000 IU, 2X/WEEK
  5. ASPIRIN, PARACETAMOL, CAFFEINE AND CHLORPHENA [Concomitant]
     Indication: PAIN
     Dosage: UNK, AS NEEDED (250 ASPIRIN/250 ACETAMINOPHEN/65 CAFFEINE)
  6. XELJANZ XR [Suspect]
     Active Substance: TOFACITINIB CITRATE
     Indication: RHEUMATOID ARTHRITIS
  7. COLACE [Concomitant]
     Active Substance: DOCUSATE SODIUM
     Indication: CONSTIPATION
     Dosage: UNK, DAILY

REACTIONS (6)
  - Therapeutic product effect delayed [Unknown]
  - Expired product administered [Unknown]
  - Depression [Not Recovered/Not Resolved]
  - Back pain [Unknown]
  - Anxiety [Not Recovered/Not Resolved]
  - Malaise [Unknown]

NARRATIVE: CASE EVENT DATE: 201710
